FAERS Safety Report 4849951-4 (Version None)
Quarter: 2005Q4

REPORT INFORMATION
  Report Type: 
  Country: None (occurrence: None)
  Receive Date: 20051101
  Receipt Date: 20051006
  Transmission Date: 20060501
  Serious: Yes (Other)
  Sender: FDA-Public Use
  Company Number: 200510364BCA

PATIENT
  Age: 50 Year
  Sex: Female

DRUGS (6)
  1. GAMUNEX [Suspect]
     Dosage: 40 G, TOTAL DAILY, INTRAVENOUS
     Route: 042
     Dates: start: 20050712
  2. GAMUNEX [Suspect]
     Dosage: 10 G, TOTAL DAILY, INTRAVENOUS
     Route: 042
     Dates: start: 20050712
  3. GAMUNEX [Suspect]
     Dosage: 10 G, TOTAL DAILY, INTRAVENOUS
     Route: 042
     Dates: start: 20050711
  4. GAMUNEX [Suspect]
     Dosage: 40 G, TOTAL DAILY, INTRAVENOUS
     Route: 042
     Dates: start: 20050711
  5. GAMUNEX [Suspect]
     Dosage: 10 G, TOTAL DAILY, INTRAVENOUS
     Route: 042
     Dates: start: 20050714
  6. GAMUNEX [Suspect]
     Dosage: 40 G, TOTAL DAILY, INTRAVENOUS
     Route: 042
     Dates: start: 20050714

REACTIONS (1)
  - HAEMOLYSIS [None]
